FAERS Safety Report 4363670-2 (Version None)
Quarter: 2004Q2

REPORT INFORMATION
  Report Type: 
  Country: None (occurrence: None)
  Receive Date: 20040517
  Receipt Date: 20040413
  Transmission Date: 20050107
  Serious: No
  Sender: FDA-Public Use
  Company Number: S04-USA-02119-01

PATIENT
  Age: 46 Year
  Sex: Female

DRUGS (2)
  1. NAMENDA [Suspect]
     Indication: AMNESIA
     Dates: start: 20040101, end: 20040201
  2. MYSOLINE [Concomitant]

REACTIONS (1)
  - INSOMNIA [None]
